FAERS Safety Report 19673735 (Version 1)
Quarter: 2021Q3

REPORT INFORMATION
  Report Type: Report from Study
  Country: None (occurrence: US)
  Receive Date: 20210809
  Receipt Date: 20210809
  Transmission Date: 20211014
  Serious: Yes (Other)
  Sender: FDA-Public Use
  Company Number: US-ABBVIE-17K-163-2155220-00

PATIENT
  Age: 39 Year
  Sex: Female

DRUGS (2)
  1. HUMIRA [Suspect]
     Active Substance: ADALIMUMAB
     Indication: ANKYLOSING SPONDYLITIS
     Route: 058
     Dates: start: 20210414
  2. HUMIRA [Suspect]
     Active Substance: ADALIMUMAB
     Indication: ANKYLOSING SPONDYLITIS
     Route: 058
     Dates: start: 20171101

REACTIONS (13)
  - Arthralgia [Recovering/Resolving]
  - Intervertebral disc protrusion [Recovering/Resolving]
  - Back pain [Recovering/Resolving]
  - Injection site pruritus [Recovered/Resolved]
  - Pain [Unknown]
  - Discomfort [Not Recovered/Not Resolved]
  - Injection site bruising [Unknown]
  - Ankylosing spondylitis [Unknown]
  - Musculoskeletal stiffness [Recovering/Resolving]
  - Neck pain [Recovering/Resolving]
  - Hypoaesthesia [Unknown]
  - Pain [Unknown]
  - Headache [Not Recovered/Not Resolved]

NARRATIVE: CASE EVENT DATE: 201711
